FAERS Safety Report 5758029-7 (Version None)
Quarter: 2008Q2

REPORT INFORMATION
  Report Type: 
  Country: None (occurrence: None)
  Receive Date: 20080530
  Receipt Date: 20080521
  Transmission Date: 20081010
  Serious: Yes (Hospitalization)
  Sender: FDA-Public Use
  Company Number: 2008-01744

PATIENT
  Age: 55 Year
  Sex: Female
  Weight: 111.4 kg

DRUGS (3)
  1. VELCADE [Suspect]
     Indication: ADENOCARCINOMA
     Dosage: 1.3 MG/M2, UNK, IV BOLUS
     Route: 040
     Dates: start: 20071217, end: 20080307
  2. QUINARETIC [Concomitant]
  3. VALACYCLOVIR [Concomitant]

REACTIONS (4)
  - DEHYDRATION [None]
  - ORAL INTAKE REDUCED [None]
  - PERIPHERAL SENSORY NEUROPATHY [None]
  - RENAL FAILURE [None]
